FAERS Safety Report 18172242 (Version 1)
Quarter: 2020Q3

REPORT INFORMATION
  Report Type: Spontaneous
  Country: AT (occurrence: AT)
  Receive Date: 20200820
  Receipt Date: 20200820
  Transmission Date: 20201103
  Serious: Yes (Disabling, Other)
  Sender: FDA-Public Use
  Company Number: AT-ROCHE-2646354

PATIENT
  Age: 23 Year
  Sex: Male

DRUGS (3)
  1. OCREVUS [Suspect]
     Active Substance: OCRELIZUMAB
     Route: 042
     Dates: start: 20190821, end: 20200304
  2. OCREVUS [Suspect]
     Active Substance: OCRELIZUMAB
     Indication: RELAPSING-REMITTING MULTIPLE SCLEROSIS
     Route: 042
     Dates: start: 20190208, end: 20190208
  3. OCREVUS [Suspect]
     Active Substance: OCRELIZUMAB
     Route: 042
     Dates: start: 20190221, end: 20190221

REACTIONS (8)
  - Dizziness [Recovered/Resolved]
  - Intervertebral disc protrusion [Unknown]
  - Pruritus [Recovered/Resolved]
  - Multiple sclerosis relapse [Unknown]
  - Lacrimation increased [Recovered/Resolved]
  - Asthenia [Unknown]
  - Hyperaesthesia [Unknown]
  - Disability [Unknown]

NARRATIVE: CASE EVENT DATE: 20200304
